FAERS Safety Report 24790851 (Version 4)
Quarter: 2025Q1

REPORT INFORMATION
  Report Type: Spontaneous
  Country: US (occurrence: None)
  Receive Date: 20241230
  Receipt Date: 20250318
  Transmission Date: 20250409
  Serious: Yes (Death, Hospitalization, Other)
  Sender: INCYTE
  Company Number: US-INCYTE CORPORATION-2024IN013707

PATIENT
  Age: 57 Year
  Weight: 90.7 kg

DRUGS (29)
  1. JAKAFI [Suspect]
     Active Substance: RUXOLITINIB
     Indication: Graft versus host disease
     Dosage: 5 MILLIGRAM, QD
  2. AXATILIMAB [Concomitant]
     Active Substance: AXATILIMAB
     Indication: Graft versus host disease
  3. DEXAMETHASONE [Concomitant]
     Active Substance: DEXAMETHASONE
     Indication: Hodgkin^s disease
     Dosage: 0.5MG/5ML TAKE 10ML (1MG) 4 TIMES A DAY
  4. DEXAMETHASONE [Concomitant]
     Active Substance: DEXAMETHASONE
     Indication: Graft versus host disease
  5. REZUROCK [Concomitant]
     Active Substance: BELUMOSUDIL
     Indication: Hodgkin^s disease
     Dosage: 200 MILLIGRAM, QD
  6. REZUROCK [Concomitant]
     Active Substance: BELUMOSUDIL
     Indication: Graft versus host disease
  7. ZOVIRAX [Concomitant]
     Active Substance: ACYCLOVIR
     Indication: Prophylaxis
     Dosage: UNK, QD
     Route: 065
  8. ZOVIRAX [Concomitant]
     Active Substance: ACYCLOVIR
     Dosage: 400 MILLIGRAM, QID FOR 30 DAYS
  9. PENICILLIN V POTASSIUM [Concomitant]
     Active Substance: PENICILLIN V POTASSIUM
     Indication: Prophylaxis
     Dosage: UNK, QD
     Route: 065
  10. MEPRON [Concomitant]
     Active Substance: ATOVAQUONE
     Indication: Prophylaxis
     Dosage: 750MG/5ML, SHAKE THEN TAKE 2 TEASPOONFULS (10CC) DAILY
     Route: 065
  11. NORVASC [Concomitant]
     Active Substance: AMLODIPINE BESYLATE
     Indication: Product used for unknown indication
     Dosage: 5 MILLIGRAM, QD
  12. ASPIRIN [Concomitant]
     Active Substance: ASPIRIN
     Indication: Product used for unknown indication
     Dosage: 81 MILLIGRAM, QD
  13. ASTELIN [Concomitant]
     Active Substance: AZELASTINE HYDROCHLORIDE
     Indication: Product used for unknown indication
     Dosage: 137 MICROGRAM (0.1%) ONE SPRAY IN EACH NOSTRIL 2 TIMES A DAY
  14. CALCIUM CARBONATE [Concomitant]
     Active Substance: CALCIUM CARBONATE
     Indication: Product used for unknown indication
     Dosage: 600 MILLIGRAM, BID
  15. VITAMIN D3 [Concomitant]
     Active Substance: CHOLECALCIFEROL
     Indication: Product used for unknown indication
     Dosage: 125 MICROGRAM (5000 UNIT)
  16. VITAMIN B12 [Concomitant]
     Active Substance: CYANOCOBALAMIN
     Indication: Product used for unknown indication
  17. PEPCID [Concomitant]
     Active Substance: FAMOTIDINE
     Indication: Product used for unknown indication
     Dosage: 20 MILLIGRAM, BID
  18. ADVAIR HFA [Concomitant]
     Active Substance: FLUTICASONE PROPIONATE\SALMETEROL XINAFOATE
     Indication: Product used for unknown indication
     Dosage: 115-21 MCG/ACTUATION
  19. FOLVITE [Concomitant]
     Active Substance: FOLIC ACID
     Indication: Product used for unknown indication
     Dosage: 1 MILLIGRAM, QD
  20. CRESEMBA [Concomitant]
     Active Substance: ISAVUCONAZONIUM SULFATE
     Indication: Product used for unknown indication
     Dosage: 186 MILLIGRAM, BID
  21. EMLA [Concomitant]
     Active Substance: LIDOCAINE\PRILOCAINE
     Indication: Product used for unknown indication
  22. MAGNESIUM OXIDE [Concomitant]
     Active Substance: MAGNESIUM OXIDE
     Indication: Product used for unknown indication
     Dosage: 400 MILLIGRAM, QOD
  23. LOPRESSOR [Concomitant]
     Active Substance: METOPROLOL TARTRATE
     Indication: Product used for unknown indication
     Dosage: TAKE ONE HALF TABLET (50MG) BID FOR 90 DAYS
  24. NARCAN [Concomitant]
     Active Substance: NALOXONE HYDROCHLORIDE
     Indication: Product used for unknown indication
  25. MYCOSTATIN [Concomitant]
     Active Substance: NYSTATIN
     Indication: Product used for unknown indication
     Dosage: 5 MILLILITER, QID
  26. PROTONIX [Concomitant]
     Active Substance: PANTOPRAZOLE SODIUM
     Indication: Product used for unknown indication
  27. VEETIDS [Concomitant]
     Active Substance: PENICILLIN V POTASSIUM
     Indication: Product used for unknown indication
     Dosage: 500 MILLIGRAM, QD
  28. SPS [Concomitant]
     Active Substance: SODIUM POLYSTYRENE SULFONATE
     Indication: Product used for unknown indication
  29. ENOXAPARIN [Concomitant]
     Active Substance: ENOXAPARIN
     Indication: Product used for unknown indication
     Route: 065

REACTIONS (58)
  - Acute respiratory failure [Fatal]
  - Cardiac arrest [Fatal]
  - Dyspnoea [Fatal]
  - Bradycardia [Fatal]
  - Cardiac failure congestive [Not Recovered/Not Resolved]
  - Chest pain [Recovered/Resolved]
  - Atrial fibrillation [Not Recovered/Not Resolved]
  - Acute myocardial infarction [Unknown]
  - Arrhythmia [Unknown]
  - Acute kidney injury [Unknown]
  - Chronic kidney disease [Unknown]
  - Heart failure with preserved ejection fraction [Unknown]
  - Cardiac failure [Unknown]
  - Chronic graft versus host disease [Unknown]
  - Cytopenia [Unknown]
  - Hypogammaglobulinaemia [Unknown]
  - Immunodeficiency [Unknown]
  - Graft versus host disease in liver [Unknown]
  - Hyperkalaemia [Unknown]
  - Influenza [Not Recovered/Not Resolved]
  - Pneumonia [Unknown]
  - Respiratory distress [Unknown]
  - Hypervolaemia [Unknown]
  - Pain [Unknown]
  - Decreased appetite [Unknown]
  - Coronary artery disease [Unknown]
  - Supraventricular tachycardia [Unknown]
  - Chronic left ventricular failure [Unknown]
  - Respiratory disorder [Unknown]
  - Left ventricular hypertrophy [Unknown]
  - Orthopnoea [Unknown]
  - Peripheral ischaemia [Unknown]
  - White blood cell count abnormal [Unknown]
  - Haemoglobin abnormal [Unknown]
  - Platelet count abnormal [Unknown]
  - Blood sodium abnormal [Unknown]
  - Blood potassium abnormal [Unknown]
  - Carbon dioxide abnormal [Unknown]
  - Albumin globulin ratio abnormal [Unknown]
  - Right ventricular systolic pressure increased [Unknown]
  - Wheezing [Unknown]
  - Pruritus [Unknown]
  - Anxiety [Unknown]
  - Acute myeloid leukaemia (in remission) [Unknown]
  - Oedema peripheral [Unknown]
  - Obstructive sleep apnoea syndrome [Unknown]
  - Blood lactic acid increased [Recovering/Resolving]
  - Blood immunoglobulin G decreased [Unknown]
  - Dysuria [Unknown]
  - Hypocalcaemia [Unknown]
  - Arthralgia [Unknown]
  - Pyrexia [Unknown]
  - Cough [Unknown]
  - Generalised oedema [Unknown]
  - Myalgia [Unknown]
  - Hypertension [Unknown]
  - Nausea [Unknown]
  - Anaemia [Unknown]
